FAERS Safety Report 7647872-5 (Version None)
Quarter: 2011Q3

REPORT INFORMATION
  Report Type: 
  Country: None (occurrence: None)
  Receive Date: 20110726
  Receipt Date: 20110715
  Transmission Date: 20111222
  Serious: Yes (Life-Threatening, Other)
  Sender: FDA-Public Use
  Company Number: OSCN-NO-1107L-0163

PATIENT
  Age: 61 Year
  Sex: Female

DRUGS (5)
  1. VINCRISTINE [Concomitant]
  2. OMNISCAN [Suspect]
     Indication: HEADACHE
     Dosage: SINGLE DOSE
  3. OMNISCAN [Suspect]
     Indication: THORACIC VERTEBRAL FRACTURE
     Dosage: SINGLE DOSE
  4. DEXAMETHASONE [Concomitant]
  5. ADRIAMYCIN PFS [Concomitant]

REACTIONS (9)
  - RASH PAPULAR [None]
  - NEPHROGENIC SYSTEMIC FIBROSIS [None]
  - OEDEMA PERIPHERAL [None]
  - PNEUMONIA [None]
  - RENAL FAILURE CHRONIC [None]
  - CONDITION AGGRAVATED [None]
  - DYSURIA [None]
  - MUSCULAR WEAKNESS [None]
  - PAIN IN EXTREMITY [None]
